FAERS Safety Report 4326156-7 (Version None)
Quarter: 2004Q1

REPORT INFORMATION
  Report Type: 
  Country: None (occurrence: None)
  Receive Date: 20040323
  Receipt Date: 20040112
  Transmission Date: 20041129
  Serious: No
  Sender: FDA-Public Use
  Company Number: USA040156278

PATIENT
  Age: 79 Year
  Sex: Male
  Weight: 68 kg

DRUGS (1)
  1. TADALAFIL [Suspect]
     Dosage: 10 MG/1 DAY
     Dates: start: 20040101, end: 20040101

REACTIONS (1)
  - HYPERSENSITIVITY [None]
